FAERS Safety Report 8609599-2 (Version None)
Quarter: 2012Q3

REPORT INFORMATION
  Report Type: 
  Country: None (occurrence: None)
  Receive Date: 20120821
  Receipt Date: 20120807
  Transmission Date: 20120928
  Serious: No
  Sender: FDA-Public Use
  Company Number: US-ASTRAZENECA-2011SE55160

PATIENT
  Age: 64 Year
  Sex: Male

DRUGS (2)
  1. GENERIC METOPROLOL [Suspect]
     Route: 048
  2. TOPROL-XL [Suspect]
     Route: 048

REACTIONS (4)
  - BLOOD PRESSURE FLUCTUATION [None]
  - ADVERSE EVENT [None]
  - DRUG DOSE OMISSION [None]
  - DRUG INEFFECTIVE [None]
